FAERS Safety Report 8989149 (Version 3)
Quarter: 2014Q3

REPORT INFORMATION
  Report Type: Spontaneous
  Country: FR (occurrence: None)
  Receive Date: 20121219
  Receipt Date: 20140702
  Transmission Date: 20150326
  Serious: Yes (Life-Threatening)
  Sender: FDA-Public Use
  Company Number: 2012000274

PATIENT
  Age: 80 Year
  Sex: Female

DRUGS (9)
  1. TEMERIT [Suspect]
     Active Substance: NEBIVOLOL
     Indication: PRODUCT USED FOR UNKNOWN INDICATION
     Route: 048
     Dates: end: 20121121
  2. ZOCOR [Concomitant]
     Active Substance: SIMVASTATIN
  3. FLUDEX [Suspect]
     Active Substance: INDAPAMIDE
     Indication: PRODUCT USED FOR UNKNOWN INDICATION
     Route: 048
     Dates: end: 20121121
  4. METFORMINE [Suspect]
     Active Substance: METFORMIN HYDROCHLORIDE
     Indication: TYPE 2 DIABETES MELLITUS
     Route: 048
     Dates: end: 20121119
  5. LASIX [Suspect]
     Active Substance: FUROSEMIDE
     Dosage: 1.5 DF QD ORAL
     Route: 048
     Dates: end: 20121123
  6. SINTROM (ACENOCOUMAROL) [Concomitant]
  7. ACEON [Suspect]
     Active Substance: PERINDOPRIL ERBUMINE
     Indication: PRODUCT USED FOR UNKNOWN INDICATION
     Route: 048
     Dates: end: 20121121
  8. CORDARONE (AMIODERONE HYDROCHLORIDE) [Concomitant]
  9. ASPEGIC (ACETYLSALICYLATE LYSINE) [Concomitant]

REACTIONS (4)
  - Drug interaction [None]
  - Lactic acidosis [None]
  - Renal failure acute [None]
  - Hyperkalaemia [None]

NARRATIVE: CASE EVENT DATE: 201211
